FAERS Safety Report 21579792 (Version 1)
Quarter: 2022Q4

REPORT INFORMATION
  Report Type: Spontaneous
  Country: US (occurrence: US)
  Receive Date: 20221110
  Receipt Date: 20221110
  Transmission Date: 20230113
  Serious: Yes (Death)
  Sender: FDA-Public Use
  Company Number: US-PROCTER_AND_GAMBLE-GS22107318

PATIENT
  Sex: Male

DRUGS (1)
  1. CREST [Suspect]
     Active Substance: SODIUM FLUORIDE

REACTIONS (3)
  - Death [Fatal]
  - Victim of chemical submission [Fatal]
  - Exposure via ingestion [Fatal]
